FAERS Safety Report 7083535-5 (Version None)
Quarter: 2010Q4

REPORT INFORMATION
  Report Type: 
  Country: None (occurrence: None)
  Receive Date: 20101104
  Receipt Date: 20101027
  Transmission Date: 20110411
  Serious: Yes (Death, Hospitalization, Other)
  Sender: FDA-Public Use
  Company Number: JP-ROCHE-719584

PATIENT
  Sex: Male
  Weight: 52 kg

DRUGS (11)
  1. AVASTIN [Suspect]
     Indication: COLON CANCER METASTATIC
     Route: 041
     Dates: start: 20091224, end: 20100218
  2. AVASTIN [Suspect]
     Route: 041
     Dates: start: 20100510, end: 20100705
  3. ELPLAT [Concomitant]
     Dosage: EIGHT COURSES
     Route: 041
     Dates: start: 20091126, end: 20100510
  4. FLUOROURACIL [Concomitant]
     Dosage: 8 COURSES.  IV BOLUS
     Route: 042
     Dates: start: 20091126, end: 20100510
  5. FLUOROURACIL [Concomitant]
     Dosage: 8 COURSES.  IV DRIP
     Route: 042
     Dates: start: 20091126, end: 20100510
  6. FLUOROURACIL [Concomitant]
     Dosage: 3 COURSES IV BOLUS
     Route: 042
     Dates: start: 20100527, end: 20100705
  7. FLUOROURACIL [Concomitant]
     Dosage: 3 COURSES.  IV DRIP
     Route: 042
     Dates: start: 20100527, end: 20100705
  8. CALCIUM LEVOFOLINATE [Concomitant]
     Indication: COLON CANCER METASTATIC
     Dosage: 8 COURSES: IV DRIP
     Route: 041
     Dates: start: 20091126, end: 20100510
  9. CALCIUM LEVOFOLINATE [Concomitant]
     Dosage: 3 COURSES
     Route: 041
     Dates: start: 20100527, end: 20100705
  10. IRINOTECAN HYDROCHLORIDE [Concomitant]
     Indication: COLON CANCER METASTATIC
     Dosage: THREE COURSES
     Route: 041
     Dates: start: 20100527, end: 20100705
  11. OXYCONTIN [Concomitant]
     Dosage: DOSAGE UNCERTAIN
     Route: 048

REACTIONS (7)
  - CYTOMEGALOVIRUS ENTEROCOLITIS [None]
  - DISEASE PROGRESSION [None]
  - ILEAL ULCER [None]
  - LYMPHANGIOSIS CARCINOMATOSA [None]
  - MELAENA [None]
  - RESPIRATORY FAILURE [None]
  - SMALL INTESTINAL ULCER HAEMORRHAGE [None]
